FAERS Safety Report 8511746-8 (Version None)
Quarter: 2012Q3

REPORT INFORMATION
  Report Type: 
  Country: None (occurrence: None)
  Receive Date: 20120711
  Receipt Date: 20120711
  Transmission Date: 20120928
  Serious: Yes (Other)
  Sender: FDA-Public Use
  Company Number: None

PATIENT

DRUGS (1)
  1. CREST PRO-HEALTH INVIGORATING CLEAN MOUTHWASH [Suspect]
     Dates: start: 20120703, end: 20120705

REACTIONS (2)
  - ORAL PAIN [None]
  - ORAL MUCOSAL EXFOLIATION [None]
